FAERS Safety Report 12457522 (Version 2)
Quarter: 2016Q2

REPORT INFORMATION
  Report Type: Report from Study
  Country: US (occurrence: US)
  Receive Date: 20160610
  Receipt Date: 20160628
  Transmission Date: 20160815
  Serious: Yes (Hospitalization, Other)
  Sender: FDA-Public Use
  Company Number: US-CELGENEUS-USA-2016052195

PATIENT
  Age: 50 Year
  Sex: Male
  Weight: 48.5 kg

DRUGS (40)
  1. OXALIPLATIN. [Suspect]
     Active Substance: OXALIPLATIN
     Indication: ADENOCARCINOMA PANCREAS
     Route: 041
     Dates: start: 20160414, end: 20160426
  2. METOCLOPRAMIDE. [Concomitant]
     Active Substance: METOCLOPRAMIDE
     Indication: NAUSEA
     Dosage: 40 MILLIGRAM/SQ. METER
     Route: 048
     Dates: start: 20160328
  3. OMEPRAZOLE. [Concomitant]
     Active Substance: OMEPRAZOLE
     Route: 048
     Dates: start: 20160303
  4. HYDROMORPHONE [Concomitant]
     Active Substance: HYDROMORPHONE
     Route: 041
     Dates: start: 20160509
  5. BEVACIZUMAB [Suspect]
     Active Substance: BEVACIZUMAB
     Indication: ADENOCARCINOMA PANCREAS
     Route: 041
     Dates: start: 20160414, end: 20160426
  6. PROCHLORPERAZINE. [Concomitant]
     Active Substance: PROCHLORPERAZINE
     Indication: PROPHYLAXIS OF NAUSEA AND VOMITING
     Route: 048
     Dates: start: 20160414
  7. BISACODYL. [Concomitant]
     Active Substance: BISACODYL
     Indication: CONSTIPATION
     Dosage: 15 MILLIGRAM
     Route: 048
     Dates: start: 20160426
  8. SODIUM PHOSPHATE [Concomitant]
     Active Substance: SODIUM PHOSPHATE
     Indication: HYPOPHOSPHATAEMIA
     Dosage: 16 MILLIGRAM
     Route: 041
     Dates: start: 20160511
  9. ZOLPIDEM [Concomitant]
     Active Substance: ZOLPIDEM\ZOLPIDEM TARTRATE
     Indication: INSOMNIA
     Route: 048
     Dates: start: 20160515, end: 20160516
  10. TRAZODONE [Concomitant]
     Active Substance: TRAZODONE HYDROCHLORIDE
     Dosage: 12 GRAM
     Route: 048
     Dates: start: 20160516
  11. 5-FU [Suspect]
     Active Substance: FLUOROURACIL
     Indication: ADENOCARCINOMA PANCREAS
     Route: 041
     Dates: start: 20160414, end: 20160426
  12. OXYCONTIN [Concomitant]
     Active Substance: OXYCODONE HYDROCHLORIDE
     Route: 048
     Dates: start: 20160407
  13. VENLAFAXINE [Concomitant]
     Active Substance: VENLAFAXINE HYDROCHLORIDE
     Dosage: 4 MILLIGRAM
     Route: 048
     Dates: start: 20160418
  14. OMEPRAZOLE. [Concomitant]
     Active Substance: OMEPRAZOLE
     Indication: GASTROOESOPHAGEAL REFLUX DISEASE
     Dosage: 20 MILLIGRAM/SQ. METER
     Route: 048
     Dates: start: 2014
  15. ONDANSETRON [Concomitant]
     Active Substance: ONDANSETRON
     Route: 041
     Dates: start: 20160509
  16. HYDROMORPHONE [Concomitant]
     Active Substance: HYDROMORPHONE
     Dosage: .5 MILLIGRAM
     Route: 048
     Dates: start: 20160506
  17. ACETAMINOPHEN. [Concomitant]
     Active Substance: ACETAMINOPHEN
     Indication: ABDOMINAL PAIN
     Route: 048
     Dates: start: 20160509, end: 20160516
  18. TRAZODONE [Concomitant]
     Active Substance: TRAZODONE HYDROCHLORIDE
     Indication: INSOMNIA
     Dosage: 75 GRAM
     Route: 048
  19. ONDANSETRON [Concomitant]
     Active Substance: ONDANSETRON
     Indication: PROPHYLAXIS OF NAUSEA AND VOMITING
     Route: 048
     Dates: start: 20160304
  20. DEXAMETHASONE. [Concomitant]
     Active Substance: DEXAMETHASONE
     Indication: PROPHYLAXIS OF NAUSEA AND VOMITING
     Route: 048
     Dates: start: 20160414
  21. ABRAXANE [Suspect]
     Active Substance: PACLITAXEL
     Indication: ADENOCARCINOMA PANCREAS
     Dosage: 75 MILLIGRAM/SQ. METER
     Route: 041
     Dates: start: 20160414, end: 20160426
  22. OXYCODONE [Concomitant]
     Active Substance: OXYCODONE
     Route: 048
     Dates: start: 20160316, end: 20160426
  23. CREON [Concomitant]
     Active Substance: PANCRELIPASE AMYLASE\PANCRELIPASE LIPASE\PANCRELIPASE PROTEASE
     Indication: PRODUCT USED FOR UNKNOWN INDICATION
     Route: 048
     Dates: start: 20160328
  24. LEUCOVORIN (FOLINIC ACID) [Suspect]
     Active Substance: LEUCOVORIN
     Indication: ADENOCARCINOMA PANCREAS
     Route: 041
     Dates: start: 20160414, end: 20160426
  25. LORAZEPAM. [Concomitant]
     Active Substance: LORAZEPAM
     Indication: PROPHYLAXIS OF NAUSEA AND VOMITING
     Dosage: 10 MILLIGRAM
     Route: 048
     Dates: start: 20160414
  26. LORAZEPAM. [Concomitant]
     Active Substance: LORAZEPAM
     Indication: ANXIETY
  27. HYDROMORPHONE [Concomitant]
     Active Substance: HYDROMORPHONE
     Dosage: 2 LITERS
     Route: 041
     Dates: start: 20160509, end: 20160516
  28. MAGNESIUM SULFATE. [Concomitant]
     Active Substance: MAGNESIUM SULFATE
     Indication: HYPOMAGNESAEMIA
     Dosage: 2 GRAM
     Route: 041
     Dates: start: 20160510
  29. OXYCODONE [Concomitant]
     Active Substance: OXYCODONE
     Indication: ABDOMINAL PAIN
     Route: 048
     Dates: start: 20160316, end: 20160426
  30. VENLAFAXINE [Concomitant]
     Active Substance: VENLAFAXINE HYDROCHLORIDE
     Indication: ABDOMINAL PAIN
     Dosage: 180 MILLIGRAM/SQ. METER
     Route: 048
     Dates: start: 20160322
  31. SENNA [Concomitant]
     Active Substance: SENNA LEAF\SENNOSIDES\SENNOSIDES A AND B
     Indication: CONSTIPATION
     Dosage: 5 MILLIGRAM/KILOGRAM
     Route: 048
     Dates: start: 20160304
  32. HYDROMORPHONE [Concomitant]
     Active Substance: HYDROMORPHONE
     Indication: ABDOMINAL PAIN
     Route: 048
     Dates: start: 20160426
  33. POTASSIUM CHLORIDE. [Concomitant]
     Active Substance: POTASSIUM CHLORIDE
     Indication: HYPOKALAEMIA
     Route: 041
     Dates: start: 20160510
  34. FUROSEMIDE. [Concomitant]
     Active Substance: FUROSEMIDE
     Indication: GENERALISED OEDEMA
     Route: 041
     Dates: start: 20160514, end: 20160516
  35. OXYCONTIN [Concomitant]
     Active Substance: OXYCODONE HYDROCHLORIDE
     Indication: ABDOMINAL PAIN
     Route: 048
     Dates: start: 20160322
  36. ONDANSETRON [Concomitant]
     Active Substance: ONDANSETRON
     Dosage: 10 MILLIGRAM
     Route: 048
     Dates: start: 20160414
  37. ONDANSETRON [Concomitant]
     Active Substance: ONDANSETRON
     Route: 041
     Dates: start: 20160509
  38. FENTANYL. [Concomitant]
     Active Substance: FENTANYL
     Indication: ABDOMINAL PAIN
     Route: 041
     Dates: start: 20160509, end: 20160510
  39. MAGNESIUM SULFATE. [Concomitant]
     Active Substance: MAGNESIUM SULFATE
     Route: 041
     Dates: start: 20160514
  40. DEXTROSE. [Concomitant]
     Active Substance: DEXTROSE
     Indication: HYPOGLYCAEMIA
     Dosage: 750 MILLIGRAM
     Route: 041
     Dates: start: 20160510

REACTIONS (2)
  - Abdominal pain [Not Recovered/Not Resolved]
  - Sepsis [Not Recovered/Not Resolved]

NARRATIVE: CASE EVENT DATE: 20160509
